FAERS Safety Report 21081811 (Version 2)
Quarter: 2022Q3

REPORT INFORMATION
  Report Type: Spontaneous
  Country: FR (occurrence: FR)
  Receive Date: 20220714
  Receipt Date: 20220812
  Transmission Date: 20221027
  Serious: Yes (Other)
  Sender: FDA-Public Use
  Company Number: FR-ViiV Healthcare Limited-59782

PATIENT

DRUGS (1)
  1. DOVATO [Suspect]
     Active Substance: DOLUTEGRAVIR SODIUM\LAMIVUDINE
     Indication: Product used for unknown indication
     Dosage: UNK
     Dates: start: 202201

REACTIONS (12)
  - Lactic acidosis [Unknown]
  - Arrhythmia [Unknown]
  - Paralysis [Unknown]
  - Bronchitis [Not Recovered/Not Resolved]
  - Cough [Unknown]
  - Dyspnoea [Unknown]
  - Headache [Unknown]
  - Limb discomfort [Unknown]
  - Pain [Unknown]
  - Paraesthesia [Recovered/Resolved]
  - Asthma exercise induced [Unknown]
  - Gait inability [Unknown]

NARRATIVE: CASE EVENT DATE: 20220427
